FAERS Safety Report 11247988 (Version 2)
Quarter: 2015Q3

REPORT INFORMATION
  Report Type: Spontaneous
  Country: GB (occurrence: None)
  Receive Date: 20150706
  Receipt Date: 20150914
  Transmission Date: 20151125
  Serious: No
  Sender: FDA-Public Use
  Company Number: GB2015K4046SPO

PATIENT
  Age: 71 Year
  Sex: Female
  Weight: 56.24 kg

DRUGS (4)
  1. AMOXICILLIN WORLD (AMOXICILLIN) [Suspect]
     Active Substance: AMOXICILLIN
     Indication: GASTRITIS EROSIVE
     Route: 048
     Dates: start: 20150408
  2. CLARITHROMYCIN WORLD (CLARITHROMYCIN) UNKNOWN [Suspect]
     Active Substance: CLARITHROMYCIN
     Indication: GASTRITIS EROSIVE
     Route: 048
     Dates: start: 20150408
  3. LANSOPRAZOLE GENERIC (LANSOPRAZOLE) UNKNOWN [Suspect]
     Active Substance: LANSOPRAZOLE
     Indication: GASTRITIS EROSIVE
     Route: 048
     Dates: start: 20150408
  4. RALOXIFENE HYDROCHLORIDE (RALOXIFENE) [Concomitant]

REACTIONS (10)
  - Malaise [None]
  - Product label issue [None]
  - Musculoskeletal stiffness [None]
  - Blister [None]
  - Drug interaction [None]
  - Nausea [None]
  - Rash macular [None]
  - Photosensitivity reaction [None]
  - Headache [None]
  - Fatigue [None]

NARRATIVE: CASE EVENT DATE: 20150408
